FAERS Safety Report 20903112 (Version 1)
Quarter: 2022Q2

REPORT INFORMATION
  Report Type: Spontaneous
  Country: US (occurrence: US)
  Receive Date: 20220601
  Receipt Date: 20220601
  Transmission Date: 20220721
  Serious: No
  Sender: FDA-Public Use
  Company Number: US-SEPTODONT-2022006693

PATIENT
  Age: 41 Year
  Sex: Female

DRUGS (2)
  1. ARTICAINE HYDROCHLORIDE\EPINEPHRINE BITARTRATE [Suspect]
     Active Substance: ARTICAINE HYDROCHLORIDE\EPINEPHRINE BITARTRATE
     Indication: Dental local anaesthesia
     Route: 004
  2. 27 gauge short needle [Concomitant]
     Indication: Dental local anaesthesia

REACTIONS (2)
  - Hypoaesthesia oral [Recovered/Resolved]
  - Therapeutic product effect prolonged [Recovered/Resolved]
